FAERS Safety Report 24899484 (Version 1)
Quarter: 2025Q1

REPORT INFORMATION
  Report Type: Spontaneous
  Country: DE (occurrence: DE)
  Receive Date: 20250129
  Receipt Date: 20250129
  Transmission Date: 20250409
  Serious: Yes (Hospitalization, Other)
  Sender: SANOFI AVENTIS
  Company Number: DE-SA-2025SA026651

PATIENT

DRUGS (1)
  1. DUPILUMAB [Suspect]
     Active Substance: DUPILUMAB
     Indication: Dermatitis atopic
     Dates: start: 2022

REACTIONS (4)
  - Colitis erosive [Unknown]
  - Large intestine polyp [Unknown]
  - Colorectal adenoma [Unknown]
  - Rectal cancer [Unknown]

NARRATIVE: CASE EVENT DATE: 20240101
